FAERS Safety Report 22323723 (Version 1)
Quarter: 2023Q2

REPORT INFORMATION
  Report Type: Spontaneous
  Country: US (occurrence: None)
  Receive Date: 20230512
  Receipt Date: 20230512
  Transmission Date: 20230722
  Serious: Yes (Other)
  Sender: FDA-Public Use
  Company Number: None

PATIENT
  Sex: Male
  Weight: 77.56 kg

DRUGS (17)
  1. TERBINAFINE [Suspect]
     Active Substance: TERBINAFINE
     Indication: Onychomycosis
     Dosage: FREQUENCY : WEEKLY;?
     Route: 048
     Dates: start: 20221025
  2. BOTOX [Concomitant]
     Active Substance: ONABOTULINUMTOXINA
  3. CLONAZEPAM [Concomitant]
     Active Substance: CLONAZEPAM
  4. EZETIMIBE [Concomitant]
     Active Substance: EZETIMIBE
  5. VITAMINS [Concomitant]
     Active Substance: VITAMINS
  6. METOPROLOL SUCCINATE [Concomitant]
     Active Substance: METOPROLOL SUCCINATE
  7. FLUTICASONE [Concomitant]
     Active Substance: FLUTICASONE
  8. allergy hcl [Concomitant]
  9. ATORVASTATIN [Concomitant]
     Active Substance: ATORVASTATIN
  10. ASPIRIN [Concomitant]
     Active Substance: ASPIRIN
  11. HYDROXYZINE [Concomitant]
     Active Substance: HYDROXYZINE HYDROCHLORIDE
  12. PANTOPRAZOLE SODIUM [Concomitant]
     Active Substance: PANTOPRAZOLE SODIUM
  13. DOXAZOSIN MESYLATE [Concomitant]
     Active Substance: DOXAZOSIN MESYLATE
  14. FENOFIBRATE [Concomitant]
     Active Substance: FENOFIBRATE
  15. SYNTHROID [Concomitant]
     Active Substance: LEVOTHYROXINE SODIUM
  16. ear drops: neomycin + polymyxine b sulfate, hydrocortiseone [Concomitant]
  17. TRIAMCINOLONE ACETONIDE [Concomitant]
     Active Substance: TRIAMCINOLONE ACETONIDE

REACTIONS (1)
  - Hypersensitivity [None]

NARRATIVE: CASE EVENT DATE: 20221001
